FAERS Safety Report 22290272 (Version 2)
Quarter: 2023Q2

REPORT INFORMATION
  Report Type: Spontaneous
  Country: US (occurrence: US)
  Receive Date: 20230505
  Receipt Date: 20230517
  Transmission Date: 20230721
  Serious: No
  Sender: FDA-Public Use
  Company Number: US-Calliditas-2023CAL00433

PATIENT
  Age: 54 Year
  Sex: Female

DRUGS (1)
  1. TARPEYO [Suspect]
     Active Substance: BUDESONIDE
     Indication: IgA nephropathy
     Dosage: 16 MG (4 MG CAPSULES) ONCE DAILY
     Route: 048
     Dates: start: 20230324

REACTIONS (9)
  - Dizziness [Unknown]
  - Hypertension [Unknown]
  - Swelling face [Unknown]
  - Paraesthesia [Unknown]
  - Sinus disorder [Unknown]
  - Illness [Unknown]
  - Dizziness [Unknown]
  - Headache [Unknown]
  - Adverse drug reaction [Unknown]
